FAERS Safety Report 16970561 (Version 1)
Quarter: 2019Q4

REPORT INFORMATION
  Report Type: Spontaneous
  Country: US (occurrence: US)
  Receive Date: 20191029
  Receipt Date: 20191029
  Transmission Date: 20200122
  Serious: Yes (Life-Threatening, Hospitalization)
  Sender: FDA-Public Use
  Company Number: US-ASTRAZENECA-2019SF52584

PATIENT
  Age: 87 Year
  Sex: Male

DRUGS (7)
  1. DONEPEZIL. [Interacting]
     Active Substance: DONEPEZIL
     Route: 065
  2. ESCITALOPRAM [Interacting]
     Active Substance: ESCITALOPRAM OXALATE
     Route: 065
  3. METHOHEXITAL [Concomitant]
     Active Substance: METHOHEXITAL
     Indication: PARALYSIS
     Dosage: 80.0MG ONCE/SINGLE ADMINISTRATION
     Route: 065
  4. SUCCINYLCHOLINE [Interacting]
     Active Substance: SUCCINYLCHOLINE
     Indication: PARALYSIS
     Dosage: 60.0MG ONCE/SINGLE ADMINISTRATION
     Route: 065
  5. METHOHEXITAL [Concomitant]
     Active Substance: METHOHEXITAL
     Indication: SEDATION
     Dosage: 80.0MG ONCE/SINGLE ADMINISTRATION
     Route: 065
  6. OMEPRAZOLE. [Suspect]
     Active Substance: OMEPRAZOLE
     Route: 048
  7. SUCCINYLCHOLINE [Interacting]
     Active Substance: SUCCINYLCHOLINE
     Indication: SEDATION
     Dosage: 60.0MG ONCE/SINGLE ADMINISTRATION
     Route: 065

REACTIONS (2)
  - Paralysis [Recovered/Resolved]
  - Inhibitory drug interaction [Recovered/Resolved]
